FAERS Safety Report 5572921-8 (Version None)
Quarter: 2007Q4

REPORT INFORMATION
  Report Type: 
  Country: None (occurrence: None)
  Receive Date: 20071219
  Receipt Date: 20071219
  Transmission Date: 20080405
  Serious: No
  Sender: FDA-Public Use
  Company Number: None

PATIENT
  Age: 21 Year
  Sex: Male
  Weight: 77.1115 kg

DRUGS (9)
  1. OLANZAPINE [Suspect]
     Dosage: 2.5MG  PO
     Route: 048
  2. QUETIAPINE [Concomitant]
  3. RIVASTIGMINE [Concomitant]
  4. GABAPENTIN [Concomitant]
  5. LORAZEPAM [Concomitant]
  6. LOXAPINE [Concomitant]
  7. LAMOTRIGINE [Concomitant]
  8. ARIPIPRAZOLE [Concomitant]
  9. BUSPIRONE HCL [Concomitant]

REACTIONS (1)
  - EPISTAXIS [None]
